FAERS Safety Report 8155711-1 (Version None)
Quarter: 2012Q1

REPORT INFORMATION
  Report Type: 
  Country: None (occurrence: None)
  Receive Date: 20120222
  Receipt Date: 20120210
  Transmission Date: 20120608
  Serious: Yes (Other)
  Sender: FDA-Public Use
  Company Number: CA-JNJFOC-20120206191

PATIENT
  Sex: Female
  Weight: 63 kg

DRUGS (6)
  1. ATROVENT [Concomitant]
     Route: 065
  2. ACETAMINOPHEN [Concomitant]
     Indication: SINUS DISORDER
     Route: 065
  3. REMICADE [Suspect]
     Route: 042
     Dates: start: 20120210
  4. EXTRA STRENGTH TYLENOL [Concomitant]
     Dosage: AS NEEDED
     Route: 065
  5. REACTINE [Concomitant]
     Route: 065
  6. REMICADE [Suspect]
     Indication: CROHN'S DISEASE
     Route: 042

REACTIONS (1)
  - TOOTH LOSS [None]
